FAERS Safety Report 7347774-8 (Version None)
Quarter: 2011Q1

REPORT INFORMATION
  Report Type: 
  Country: None (occurrence: None)
  Receive Date: 20110311
  Receipt Date: 20110308
  Transmission Date: 20110831
  Serious: Yes (Other)
  Sender: FDA-Public Use
  Company Number: ES-PFIZER INC-2011049992

PATIENT
  Age: 72 Year
  Sex: Female

DRUGS (5)
  1. ACETAMINOPHEN [Concomitant]
     Indication: PAIN
     Dosage: 1 G, 3X/DAY
     Route: 042
     Dates: start: 20101011
  2. AMOXICILLIN AND CLAVULANATE POTASSIUM [Suspect]
     Dosage: 1 G, 3X/DAY
     Route: 042
     Dates: start: 20101011, end: 20101013
  3. LACTOBACILLUS ACIDOPHILUS [Concomitant]
     Indication: PROBIOTIC THERAPY
     Dosage: UNK
     Route: 048
     Dates: start: 20101011
  4. TAZOCEL [Suspect]
     Indication: ENDOCARDITIS
     Dosage: 1 UNK, 3X/DAY
     Route: 042
     Dates: start: 20101013, end: 20101025
  5. VANCOMYCIN [Suspect]
     Indication: ENDOCARDITIS
     Dosage: 1 G, 3X/DAY
     Route: 042
     Dates: start: 20101013, end: 20101025

REACTIONS (3)
  - ASTHENIA [None]
  - HYPOMAGNESAEMIA [None]
  - HYPOKALAEMIA [None]
